FAERS Safety Report 5311522-3 (Version None)
Quarter: 2007Q2

REPORT INFORMATION
  Report Type: 
  Country: None (occurrence: None)
  Receive Date: 20070430
  Receipt Date: 20070423
  Transmission Date: 20071010
  Serious: Yes (Other)
  Sender: FDA-Public Use
  Company Number: BW-GLAXOSMITHKLINE-B0462894A

PATIENT
  Age: 31 Year
  Sex: Female
  Weight: 96 kg

DRUGS (2)
  1. COMBIVIR [Suspect]
     Indication: ANTIVIRAL PROPHYLAXIS
     Dosage: 1TAB TWICE PER DAY
     Route: 048
     Dates: start: 20060913
  2. KALETRA [Suspect]
     Indication: ANTIVIRAL PROPHYLAXIS
     Dosage: 3CAP TWICE PER DAY
     Route: 048
     Dates: start: 20060913

REACTIONS (6)
  - BLOOD PRESSURE INCREASED [None]
  - INTRA-UTERINE DEATH [None]
  - OEDEMA [None]
  - PRE-ECLAMPSIA [None]
  - PROTEINURIA [None]
  - WEIGHT INCREASED [None]
